FAERS Safety Report 10149891 (Version 20)
Quarter: 2015Q2

REPORT INFORMATION
  Report Type: Report from Study
  Country: US (occurrence: US)
  Receive Date: 20140502
  Receipt Date: 20150413
  Transmission Date: 20150821
  Serious: Yes (Hospitalization, Disabling)
  Sender: FDA-Public Use
  Company Number: US-SA-2013SA125887

PATIENT
  Age: 52 Year
  Sex: Female

DRUGS (2)
  1. AUBAGIO [Suspect]
     Active Substance: TERIFLUNOMIDE
     Indication: MULTIPLE SCLEROSIS
     Route: 048
     Dates: start: 20131114, end: 201412
  2. AUBAGIO [Suspect]
     Active Substance: TERIFLUNOMIDE
     Indication: MULTIPLE SCLEROSIS
     Route: 048
     Dates: end: 20141231

REACTIONS (24)
  - Fatigue [Recovering/Resolving]
  - Tearfulness [Unknown]
  - Weight decreased [Unknown]
  - Wheelchair user [Recovering/Resolving]
  - Cognitive disorder [Unknown]
  - Diarrhoea [Not Recovered/Not Resolved]
  - Sleep disorder [Unknown]
  - Pyrexia [Unknown]
  - Pollakiuria [Unknown]
  - Diplopia [Unknown]
  - Asthenia [Recovering/Resolving]
  - Vomiting [Not Recovered/Not Resolved]
  - Escherichia urinary tract infection [Not Recovered/Not Resolved]
  - Arthralgia [Recovering/Resolving]
  - Weight increased [Unknown]
  - Dysstasia [Not Recovered/Not Resolved]
  - Unevaluable event [Unknown]
  - Micturition disorder [Not Recovered/Not Resolved]
  - Malaise [Unknown]
  - Multiple sclerosis relapse [Unknown]
  - Abasia [Recovered/Resolved]
  - Incontinence [Unknown]
  - Vertigo [Not Recovered/Not Resolved]
  - Memory impairment [Recovering/Resolving]

NARRATIVE: CASE EVENT DATE: 201311
